FAERS Safety Report 12398463 (Version 1)
Quarter: 2016Q2

REPORT INFORMATION
  Report Type: Spontaneous
  Country: US (occurrence: US)
  Receive Date: 20160524
  Receipt Date: 20160524
  Transmission Date: 20160815
  Serious: No
  Sender: FDA-Public Use
  Company Number: US-BAYER-2016-096227

PATIENT
  Age: 84 Year
  Sex: Female
  Weight: 71.66 kg

DRUGS (2)
  1. ZEGERID OTC CAPSULES [Suspect]
     Active Substance: OMEPRAZOLE\SODIUM BICARBONATE
     Indication: IRRITABLE BOWEL SYNDROME
  2. ZEGERID OTC CAPSULES [Suspect]
     Active Substance: OMEPRAZOLE\SODIUM BICARBONATE
     Indication: GASTROOESOPHAGEAL REFLUX DISEASE
     Dosage: UNK UNK, BID
     Route: 048
     Dates: start: 2001

REACTIONS (5)
  - Swelling [None]
  - Therapeutic response unexpected [None]
  - Product used for unknown indication [None]
  - Abdominal distension [None]
  - Product use issue [None]
